FAERS Safety Report 24097360 (Version 1)
Quarter: 2024Q3

REPORT INFORMATION
  Report Type: Spontaneous
  Country: RS (occurrence: RS)
  Receive Date: 20240716
  Receipt Date: 20240716
  Transmission Date: 20241017
  Serious: Yes (Death, Life-Threatening, Other)
  Sender: PFIZER
  Company Number: RS-PFIZER INC-202400210350

PATIENT
  Age: 32 Year
  Sex: Male

DRUGS (10)
  1. DOXORUBICIN HYDROCHLORIDE [Suspect]
     Active Substance: DOXORUBICIN HYDROCHLORIDE
     Indication: B-cell lymphoma refractory
     Dosage: UNK, CYCLIC (SIX CYCLES)
     Dates: start: 202301
  2. RITUXIMAB [Suspect]
     Active Substance: RITUXIMAB
     Indication: B-cell lymphoma refractory
     Dosage: UNK, CYCLIC (SIX CYCLES)
     Dates: start: 202301
  3. CYTARABINE [Suspect]
     Active Substance: CYTARABINE
     Indication: B-cell lymphoma refractory
     Dosage: UNK, CYCLIC
     Dates: start: 202302
  4. CYTARABINE [Suspect]
     Active Substance: CYTARABINE
     Indication: Salvage therapy
  5. CISPLATIN [Suspect]
     Active Substance: CISPLATIN
     Indication: B-cell lymphoma refractory
     Dosage: UNK, CYCLIC
     Dates: start: 202302
  6. ONCOVIN [Suspect]
     Active Substance: VINCRISTINE SULFATE
     Indication: B-cell lymphoma refractory
     Dosage: UNK, CYCLIC (SIX CYCLES)
     Dates: start: 202301
  7. CYCLOPHOSPHAMIDE [Suspect]
     Active Substance: CYCLOPHOSPHAMIDE
     Indication: B-cell lymphoma refractory
     Dosage: UNK, CYCLIC (SIX CYCLES)
     Dates: start: 202301
  8. PREDNISONE [Suspect]
     Active Substance: PREDNISONE
     Indication: B-cell lymphoma refractory
     Dosage: UNK, CYCLIC (SIX CYCLES)
     Dates: start: 202301
  9. DEXAMETHASONE [Suspect]
     Active Substance: DEXAMETHASONE
     Indication: B-cell lymphoma refractory
     Dosage: UNK, CYCLIC
     Dates: start: 202302
  10. DEXAMETHASONE [Suspect]
     Active Substance: DEXAMETHASONE
     Indication: Salvage therapy

REACTIONS (1)
  - Haemophagocytic lymphohistiocytosis [Fatal]

NARRATIVE: CASE EVENT DATE: 20230401
